FAERS Safety Report 9216242 (Version 4)
Quarter: 2013Q3

REPORT INFORMATION
  Report Type: Report from Study
  Country: CA (occurrence: CA)
  Receive Date: 20130408
  Receipt Date: 20130801
  Transmission Date: 20140515
  Serious: Yes (Life-Threatening, Hospitalization)
  Sender: FDA-Public Use
  Company Number: US-SANOFI-AVENTIS-2013SA027072

PATIENT
  Age: 75 Year
  Sex: Male
  Weight: 105.2 kg

DRUGS (14)
  1. CABAZITAXEL [Suspect]
     Indication: PROSTATE CANCER
     Route: 042
     Dates: start: 20130221
  2. ANTINEOPLASTIC AGENTS [Suspect]
     Indication: PROSTATE CANCER
  3. HEPARIN [Suspect]
  4. PREDNISONE [Concomitant]
     Indication: PROSTATE CANCER
     Route: 048
     Dates: start: 20111129
  5. PANTOPRAZOLE [Concomitant]
     Indication: PROPHYLAXIS
     Route: 048
     Dates: start: 20111129
  6. LYRICA [Concomitant]
     Indication: PAIN
     Route: 048
     Dates: start: 20120206
  7. LYRICA [Concomitant]
     Indication: HYPOAESTHESIA
     Route: 048
     Dates: start: 20120206
  8. ZOLADEX LA [Concomitant]
     Indication: PROSTATE CANCER
     Dates: start: 201210
  9. IMODIUM [Concomitant]
     Indication: DIARRHOEA
     Route: 048
     Dates: start: 20130226
  10. ZOLEDRONATE [Concomitant]
     Indication: PROPHYLAXIS
     Route: 042
     Dates: start: 201010
  11. VITAMIN D [Concomitant]
     Indication: PROPHYLAXIS
  12. ALDACTONE [Concomitant]
     Dates: start: 201202
  13. SENOKOT /UNK/ [Concomitant]
     Indication: CONSTIPATION
     Dates: start: 20130214
  14. CALCIUM [Concomitant]
     Indication: PROPHYLAXIS
     Dates: start: 20120222

REACTIONS (4)
  - Pulmonary embolism [Recovering/Resolving]
  - Diarrhoea [Recovered/Resolved]
  - Neutropenia [Recovered/Resolved]
  - Gastrointestinal haemorrhage [Recovered/Resolved]
